FAERS Safety Report 19753675 (Version 17)
Quarter: 2025Q4

REPORT INFORMATION
  Report Type: Report from Study
  Country: IL (occurrence: IL)
  Receive Date: 20210826
  Receipt Date: 20251113
  Transmission Date: 20260117
  Serious: Yes (Death, Life-Threatening, Hospitalization, Other)
  Sender: ABBVIE
  Company Number: IL-ABBVIE-21K-082-4054569-00

PATIENT
  Age: 78 Year
  Sex: Male
  Weight: 112 kg

DRUGS (54)
  1. VENETOCLAX [Suspect]
     Active Substance: VENETOCLAX
     Indication: Acute myeloid leukaemia
     Dosage: STRENGTH: 100 MILLIGRAM?DURATION TEXT: INTERRUPTION - COUNT RECOVERY
     Route: 048
     Dates: start: 20210322, end: 20210323
  2. VENETOCLAX [Suspect]
     Active Substance: VENETOCLAX
     Indication: Acute myeloid leukaemia
     Dosage: STRENGTH: 100 MILLIGRAM
     Route: 048
     Dates: start: 20210331, end: 20210331
  3. VENETOCLAX [Suspect]
     Active Substance: VENETOCLAX
     Indication: Acute myeloid leukaemia
     Dosage: STRENGTH: 100 MILLIGRAM
     Route: 048
     Dates: start: 20210401, end: 20210401
  4. VENETOCLAX [Suspect]
     Active Substance: VENETOCLAX
     Indication: Acute myeloid leukaemia
     Dosage: STRENGTH: 100 MILLIGRAM
     Route: 048
     Dates: start: 20210402, end: 20210608
  5. VENETOCLAX [Suspect]
     Active Substance: VENETOCLAX
     Indication: Acute myeloid leukaemia
     Dosage: STRENGTH: 100 MILLIGRAM?DURATION TEXT: INTERRUPTION
     Route: 048
     Dates: start: 20210610, end: 20210615
  6. VENETOCLAX [Suspect]
     Active Substance: VENETOCLAX
     Indication: Acute myeloid leukaemia
     Dosage: START DATE: JUN 2021
     Route: 048
     Dates: end: 20210709
  7. VENETOCLAX [Suspect]
     Active Substance: VENETOCLAX
     Indication: Acute myeloid leukaemia
     Dosage: STRENGTH: 100 MILLIGRAM?DURATION TEXT: DISCONTINUATION-PROGRESSION OF DISEASE
     Route: 048
     Dates: start: 20221106, end: 20221126
  8. VENETOCLAX [Suspect]
     Active Substance: VENETOCLAX
     Indication: Acute myeloid leukaemia
     Dosage: DURATION TEXT: INTERRUPTION DUE TO AE
     Route: 048
     Dates: start: 20210919, end: 20210930
  9. VENETOCLAX [Suspect]
     Active Substance: VENETOCLAX
     Indication: Acute myeloid leukaemia
     Dosage: STRENGTH: 100 MILLIGRAM?DURATION TEXT: INTERRUPTION
     Route: 048
     Dates: start: 20210815, end: 20210828
  10. VENETOCLAX [Suspect]
     Active Substance: VENETOCLAX
     Indication: Acute myeloid leukaemia
     Dosage: STRENGTH: 100 MILLIGRAM
     Route: 048
     Dates: start: 20211031, end: 20211124
  11. VENETOCLAX [Suspect]
     Active Substance: VENETOCLAX
     Indication: Acute myeloid leukaemia
     Dosage: 100 MG, ?DURATION TEXT: INTERRUPTION- BM BIOPSY
     Route: 048
     Dates: start: 20211205, end: 20220518
  12. VENETOCLAX [Suspect]
     Active Substance: VENETOCLAX
     Indication: Acute myeloid leukaemia
     Dosage: STRENGTH: 100 MILLIGRAM
     Route: 048
     Dates: start: 20220525, end: 20220827
  13. VENETOCLAX [Suspect]
     Active Substance: VENETOCLAX
     Indication: Acute myeloid leukaemia
     Dosage: STRENGTH: 100 MILLIGRAM
     Route: 048
     Dates: start: 20221018, end: 20221025
  14. VENETOCLAX [Suspect]
     Active Substance: VENETOCLAX
     Indication: Acute myeloid leukaemia
     Dosage: STRENGTH: 100 MILLIGRAM
     Route: 048
     Dates: start: 20220915, end: 20221001
  15. TRESIBA [Concomitant]
     Active Substance: INSULIN DEGLUDEC
     Indication: Diabetes mellitus
  16. AZACITIDINE [Suspect]
     Active Substance: AZACITIDINE
     Indication: Acute myeloid leukaemia
     Dosage: DURATION TEXT: DISCONTINUATION-PROGRESSION OF DISEASE
     Route: 058
     Dates: start: 20210322, end: 20210323
  17. AZACITIDINE [Suspect]
     Active Substance: AZACITIDINE
     Indication: Acute myeloid leukaemia
     Dosage: DURATION TEXT: CYCLE 1
     Route: 058
     Dates: start: 20210328, end: 20210401
  18. AZACITIDINE [Suspect]
     Active Substance: AZACITIDINE
     Indication: Acute myeloid leukaemia
     Dosage: DURATION TEXT: CYCLE 1 INTERRUPTION- ADVERSE EVENT
     Route: 058
     Dates: start: 20210404, end: 20210408
  19. AZACITIDINE [Suspect]
     Active Substance: AZACITIDINE
     Indication: Acute myeloid leukaemia
     Dosage: DURATION TEXT: CYCLE 1
     Route: 058
     Dates: start: 20210425, end: 20210429
  20. AZACITIDINE [Suspect]
     Active Substance: AZACITIDINE
     Indication: Acute myeloid leukaemia
     Dosage: DURATION TEXT: CYCLE 1
     Route: 058
     Dates: start: 20210502, end: 20210506
  21. AZACITIDINE [Suspect]
     Active Substance: AZACITIDINE
     Indication: Acute myeloid leukaemia
     Dosage: DURATION TEXT: CYCLE 1
     Route: 058
     Dates: start: 20210523, end: 20210527
  22. AZACITIDINE [Suspect]
     Active Substance: AZACITIDINE
     Indication: Acute myeloid leukaemia
     Dosage: DURATION TEXT: CYCLE 2
     Route: 058
     Dates: start: 20210530, end: 20210603
  23. AZACITIDINE [Suspect]
     Active Substance: AZACITIDINE
     Indication: Acute myeloid leukaemia
     Dosage: DURATION TEXT: CYCLE 3
     Route: 058
     Dates: start: 20210627, end: 20210701
  24. AZACITIDINE [Suspect]
     Active Substance: AZACITIDINE
     Indication: Acute myeloid leukaemia
     Dosage: DURATION TEXT: CYCLE 3
     Route: 058
     Dates: start: 20210704, end: 20210708
  25. AZACITIDINE [Suspect]
     Active Substance: AZACITIDINE
     Indication: Acute myeloid leukaemia
     Dosage: DURATION TEXT: CYCLE 3?FREQUENCY TEXT: QD
     Route: 058
     Dates: start: 20210708, end: 20210708
  26. AZACITIDINE [Suspect]
     Active Substance: AZACITIDINE
     Indication: Acute myeloid leukaemia
     Dosage: DURATION TEXT: CYCLE 4?FREQUENCY TEXT: QD
     Route: 058
     Dates: start: 20210922, end: 20210922
  27. AZACITIDINE [Suspect]
     Active Substance: AZACITIDINE
     Indication: Acute myeloid leukaemia
     Dosage: DURATION TEXT: CYCLE 5?FREQUENCY TEXT: QD
     Route: 058
     Dates: start: 20210923, end: 20210923
  28. AZACITIDINE [Suspect]
     Active Substance: AZACITIDINE
     Indication: Acute myeloid leukaemia
     Dosage: DURATION TEXT: CYCLE 14 INTERRUPTION ADVERSE EVENT
     Route: 058
     Dates: start: 20220808, end: 20220811
  29. AZACITIDINE [Suspect]
     Active Substance: AZACITIDINE
     Indication: Acute myeloid leukaemia
     Dosage: DURATION TEXT: CYCLE 5?FREQUENCY TEXT: QD
     Route: 058
     Dates: start: 20210925, end: 20210925
  30. AZACITIDINE [Suspect]
     Active Substance: AZACITIDINE
     Indication: Acute myeloid leukaemia
     Dosage: DURATION TEXT: CYCLE 5
     Route: 058
     Dates: start: 20210926, end: 20210930
  31. AZACITIDINE [Suspect]
     Active Substance: AZACITIDINE
     Indication: Acute myeloid leukaemia
     Dosage: DURATION TEXT: CYCLE 6 - INTERRUPTION DUE TO AE
     Route: 058
     Dates: start: 20211031, end: 20211104
  32. AZACITIDINE [Suspect]
     Active Substance: AZACITIDINE
     Indication: Acute myeloid leukaemia
     Dosage: DURATION TEXT: CYCLE 7
     Route: 058
     Dates: start: 20211205, end: 20211209
  33. AZACITIDINE [Suspect]
     Active Substance: AZACITIDINE
     Indication: Acute myeloid leukaemia
     Dosage: DURATION TEXT: CYCLE 8
     Route: 058
     Dates: start: 20220109, end: 20220113
  34. AZACITIDINE [Suspect]
     Active Substance: AZACITIDINE
     Indication: Acute myeloid leukaemia
     Dosage: DURATION TEXT: CYCLE 9
     Route: 058
     Dates: start: 20220206, end: 20220210
  35. AZACITIDINE [Suspect]
     Active Substance: AZACITIDINE
     Indication: Acute myeloid leukaemia
     Dosage: DURATION TEXT: CYCLE 10?START DATE TEXT: 0
     Route: 058
     Dates: start: 20220306, end: 20220310
  36. AZACITIDINE [Suspect]
     Active Substance: AZACITIDINE
     Indication: Acute myeloid leukaemia
     Dosage: DURATION TEXT: CYCLE 15
     Route: 058
     Dates: start: 20220911, end: 20220915
  37. AZACITIDINE [Suspect]
     Active Substance: AZACITIDINE
     Indication: Acute myeloid leukaemia
     Dosage: DURATION TEXT: CYCLE 11?START DATE TEXT: 0
     Route: 058
     Dates: start: 20220403, end: 20220407
  38. AZACITIDINE [Suspect]
     Active Substance: AZACITIDINE
     Indication: Acute myeloid leukaemia
     Dosage: DURATION TEXT: CYCLE 17 DISCONTINUATION ADVERSE EVENT
     Route: 058
     Dates: start: 20221106, end: 20221110
  39. AZACITIDINE [Suspect]
     Active Substance: AZACITIDINE
     Indication: Acute myeloid leukaemia
     Dosage: DURATION TEXT: CYCLE 12?START DATE TEXT: 3
     Route: 058
     Dates: start: 20220529, end: 20220602
  40. AZACITIDINE [Suspect]
     Active Substance: AZACITIDINE
     Indication: Acute myeloid leukaemia
     Dosage: DURATION TEXT: CYCLE 13
     Route: 058
     Dates: start: 20220626, end: 20220630
  41. AZACITIDINE [Suspect]
     Active Substance: AZACITIDINE
     Indication: Acute myeloid leukaemia
     Dosage: DURATION TEXT: CYCLE 3
     Route: 058
     Dates: start: 20210815, end: 20210819
  42. AZACITIDINE [Suspect]
     Active Substance: AZACITIDINE
     Indication: Acute myeloid leukaemia
     Dosage: DURATION TEXT: CYCLE 5
     Route: 058
     Dates: start: 202109, end: 202109
  43. LYRICA [Concomitant]
     Active Substance: PREGABALIN
     Indication: Neuralgia
  44. Oxopurin [Concomitant]
     Indication: Neuralgia
  45. RAMIPRIL [Concomitant]
     Active Substance: RAMIPRIL
     Indication: Hypertension
  46. ALFUZOSIN [Concomitant]
     Active Substance: ALFUZOSIN
     Indication: Hypertension
  47. BISACODYL [Concomitant]
     Active Substance: BISACODYL
     Indication: Constipation
  48. Normalax [Concomitant]
     Indication: Constipation
  49. MIRABEGRON [Concomitant]
     Active Substance: MIRABEGRON
     Indication: Bladder disorder
  50. BROTIZOLAM [Concomitant]
     Active Substance: BROTIZOLAM
     Indication: Insomnia
  51. GLUCOPHAGE [Concomitant]
     Active Substance: METFORMIN HYDROCHLORIDE
     Indication: Diabetes mellitus
  52. Cartia [Concomitant]
     Indication: Hypertension
     Dates: end: 20210616
  53. ALLOPURINOL [Concomitant]
     Active Substance: ALLOPURINOL
     Indication: Prophylaxis
     Dates: start: 20210316, end: 20210316
  54. INSULIN DEGLUDEC [Concomitant]
     Active Substance: INSULIN DEGLUDEC
     Indication: Diabetes mellitus

REACTIONS (26)
  - Disease recurrence [Fatal]
  - Adenocarcinoma [Fatal]
  - Bile duct stenosis [Recovered/Resolved]
  - Diabetic neuropathy [Recovered/Resolved]
  - Hepatitis [Recovered/Resolved]
  - Cholangitis [Recovered/Resolved]
  - Pain in extremity [Recovered/Resolved]
  - Drug hypersensitivity [Recovered/Resolved]
  - Pain in extremity [Recovered/Resolved]
  - Pyrexia [Recovered/Resolved]
  - Neutropenia [Recovered/Resolved]
  - Hepatitis [Recovered/Resolved]
  - Biliary tract infection [Recovered/Resolved]
  - Skin lesion [Recovered/Resolved]
  - Skin lesion [Recovered/Resolved]
  - Neutropenia [Recovered/Resolved]
  - Paraesthesia [Recovered/Resolved]
  - Cough [Recovered/Resolved]
  - Asthenia [Recovered/Resolved]
  - Constipation [Recovered/Resolved]
  - Neutropenia [Recovered/Resolved]
  - Asthenia [Recovered/Resolved]
  - Oedema peripheral [Recovered/Resolved]
  - Bone pain [Recovered/Resolved]
  - Blood alkaline phosphatase increased [Recovered/Resolved]
  - Pancytopenia [Not Recovered/Not Resolved]

NARRATIVE: CASE EVENT DATE: 20210330
